FAERS Safety Report 4319338-1 (Version None)
Quarter: 2004Q1

REPORT INFORMATION
  Report Type: 
  Country: None (occurrence: None)
  Receive Date: 20040316
  Receipt Date: 20040302
  Transmission Date: 20041129
  Serious: Yes (Hospitalization, Other)
  Sender: FDA-Public Use
  Company Number: 2004201741BE

PATIENT
  Age: 58 Year
  Sex: Male

DRUGS (5)
  1. ALDACTONE [Suspect]
     Dates: start: 19990903, end: 19991022
  2. COLCHICINE [Concomitant]
  3. AMIODARONE HCL [Concomitant]
  4. PERINDOPRIL [Concomitant]
  5. ALLOPURINOL [Concomitant]

REACTIONS (9)
  - CARDIAC FAILURE [None]
  - CYTOLYTIC HEPATITIS [None]
  - HEPATIC FAILURE [None]
  - JAUNDICE CHOLESTATIC [None]
  - MULTI-ORGAN FAILURE [None]
  - PANCREATIC INSUFFICIENCY [None]
  - RASH GENERALISED [None]
  - RENAL FAILURE [None]
  - SKIN TEST POSITIVE [None]
